FAERS Safety Report 12039694 (Version 1)
Quarter: 2016Q1

REPORT INFORMATION
  Report Type: Spontaneous
  Country: US (occurrence: US)
  Receive Date: 20160208
  Receipt Date: 20160208
  Transmission Date: 20160526
  Serious: No
  Sender: FDA-Public Use
  Company Number: US-BAYER-2016-024254

PATIENT
  Sex: Female

DRUGS (1)
  1. ULTRAVIST [Suspect]
     Active Substance: IOPROMIDE
     Indication: COMPUTERISED TOMOGRAM THORAX
     Dosage: 100 ML, ONCE
     Route: 042
     Dates: start: 20160204, end: 20160204

REACTIONS (2)
  - Cough [None]
  - Urticaria [None]

NARRATIVE: CASE EVENT DATE: 20160204
